FAERS Safety Report 6551157-8 (Version None)
Quarter: 2010Q1

REPORT INFORMATION
  Report Type: 
  Country: None (occurrence: None)
  Receive Date: 20100121
  Receipt Date: 20100107
  Transmission Date: 20100710
  Serious: Yes (Other)
  Sender: FDA-Public Use
  Company Number: 2010AP000056

PATIENT
  Age: 25 Year
  Sex: Female

DRUGS (3)
  1. SERTRALINE HYDROCHLORIDE [Suspect]
     Dosage: 50 MG;, 50 MG; QD;
     Dates: start: 20070301, end: 20080401
  2. SERTRALINE HYDROCHLORIDE [Suspect]
     Dosage: 50 MG;, 50 MG; QD;
     Dates: end: 20090501
  3. SERTRALINE HYDROCHLORIDE [Suspect]
     Dosage: 50 MG;, 50 MG; QD;
     Dates: end: 20090501

REACTIONS (2)
  - CONDITION AGGRAVATED [None]
  - PSORIASIS [None]
